FAERS Safety Report 5526911-1 (Version None)
Quarter: 2007Q4

REPORT INFORMATION
  Report Type: 
  Country: None (occurrence: None)
  Receive Date: 20071127
  Receipt Date: 20071115
  Transmission Date: 20080405
  Serious: Yes (Hospitalization, Other)
  Sender: FDA-Public Use
  Company Number: US-PFIZER INC-2007093940

PATIENT
  Sex: Male
  Weight: 62.272 kg

DRUGS (8)
  1. DILANTIN [Suspect]
     Indication: GRAND MAL CONVULSION
  2. PHENYTOIN SUSPENSION [Suspect]
     Indication: GRAND MAL CONVULSION
  3. OXYCONTIN [Concomitant]
  4. OXYCODONE HCL [Concomitant]
  5. XANAX [Concomitant]
  6. MIRAPEX [Concomitant]
  7. NEURONTIN [Concomitant]
  8. ELAVIL [Concomitant]

REACTIONS (11)
  - ANTICONVULSANT DRUG LEVEL DECREASED [None]
  - ATAXIA [None]
  - CEREBROVASCULAR ACCIDENT [None]
  - CONFUSIONAL STATE [None]
  - CONVULSION [None]
  - DYSARTHRIA [None]
  - FATIGUE [None]
  - GAIT DISTURBANCE [None]
  - MALAISE [None]
  - PALLOR [None]
  - SOMNOLENCE [None]
